FAERS Safety Report 12061109 (Version 1)
Quarter: 2016Q1

REPORT INFORMATION
  Report Type: Spontaneous
  Country: PL (occurrence: PL)
  Receive Date: 20160210
  Receipt Date: 20160210
  Transmission Date: 20160526
  Serious: Yes (Hospitalization)
  Sender: FDA-Public Use
  Company Number: PHHY2016PL015074

PATIENT
  Age: 14 Year
  Sex: Female
  Weight: 64 kg

DRUGS (1)
  1. ZOLPIDEM [Suspect]
     Active Substance: ZOLPIDEM\ZOLPIDEM TARTRATE
     Indication: SUICIDE ATTEMPT
     Route: 048
     Dates: start: 20160112, end: 20160112

REACTIONS (3)
  - Somnolence [Recovered/Resolved]
  - Balance disorder [Recovered/Resolved]
  - Hyporeflexia [Recovered/Resolved]

NARRATIVE: CASE EVENT DATE: 20160112
